FAERS Safety Report 10103591 (Version 1)
Quarter: 2014Q2

REPORT INFORMATION
  Report Type: Report from Study
  Country: FI (occurrence: FI)
  Receive Date: 20140424
  Receipt Date: 20140424
  Transmission Date: 20141212
  Serious: Yes (Other)
  Sender: FDA-Public Use
  Company Number: FI-ASTELLAS-2014US004009

PATIENT
  Age: 51 Year
  Sex: Female

DRUGS (2)
  1. ERLOTINIB [Suspect]
     Indication: NON-SMALL CELL LUNG CANCER
     Dosage: UNK UNK, UNKNOWN FREQ.
     Route: 065
     Dates: start: 20140110
  2. METFORMIN HYDROCHLORIDE [Concomitant]
     Indication: PRODUCT USED FOR UNKNOWN INDICATION
     Dosage: UNK UNK, UNKNOWN FREQ.
     Route: 065

REACTIONS (9)
  - Pulmonary embolism [Unknown]
  - Interstitial lung disease [Unknown]
  - Disease progression [Unknown]
  - Hepatic cyst [Unknown]
  - Platelet count increased [Unknown]
  - Bronchitis [Unknown]
  - Diarrhoea [Unknown]
  - Rash [Unknown]
  - Liver function test abnormal [Unknown]
